FAERS Safety Report 15204817 (Version 2)
Quarter: 2018Q4

REPORT INFORMATION
  Report Type: Spontaneous
  Country: CA (occurrence: CA)
  Receive Date: 20180726
  Receipt Date: 20181126
  Transmission Date: 20190204
  Serious: Yes (Hospitalization, Other)
  Sender: FDA-Public Use
  Company Number: CA-SHIRE-CA201828165

PATIENT

DRUGS (6)
  1. ACYCLOVIR. [Concomitant]
     Active Substance: ACYCLOVIR
     Indication: GENERALISED TONIC-CLONIC SEIZURE
  2. DEXAMETHASONE. [Concomitant]
     Active Substance: DEXAMETHASONE
     Indication: GENERALISED TONIC-CLONIC SEIZURE
  3. PREDNISONE. [Suspect]
     Active Substance: PREDNISONE
     Indication: ACUTE DISSEMINATED ENCEPHALOMYELITIS
     Dosage: UNK
     Route: 065
  4. METHYLPREDNISOLONE. [Suspect]
     Active Substance: METHYLPREDNISOLONE
     Indication: PRODUCT USED FOR UNKNOWN INDICATION
     Route: 042
  5. CYCLOPHOSPHAMIDE. [Suspect]
     Active Substance: CYCLOPHOSPHAMIDE
     Indication: PRODUCT USED FOR UNKNOWN INDICATION
     Dosage: UNK
     Route: 042
  6. GAMMAGARD LIQUID [Suspect]
     Active Substance: HUMAN IMMUNOGLOBULIN G
     Indication: ACUTE DISSEMINATED ENCEPHALOMYELITIS
     Route: 042

REACTIONS (1)
  - Drug ineffective [Unknown]
